FAERS Safety Report 16152059 (Version 3)
Quarter: 2019Q4

REPORT INFORMATION
  Report Type: Spontaneous
  Country: IN (occurrence: IN)
  Receive Date: 20190403
  Receipt Date: 20191022
  Transmission Date: 20200122
  Serious: Yes (Other)
  Sender: FDA-Public Use
  Company Number: IN-PFIZER INC-2018166641

PATIENT
  Age: 46 Year
  Sex: Female
  Weight: 63.5 kg

DRUGS (10)
  1. CRIZALK [Suspect]
     Active Substance: CRIZOTINIB
     Dosage: 250 MG, TWICE A DAY
     Route: 048
     Dates: start: 20170828
  2. CRIZALK [Suspect]
     Active Substance: CRIZOTINIB
     Dosage: 250 MG, 2X DAY (8:00 AM AND 8:00 PM)
     Dates: start: 20170925
  3. CRIZALK [Suspect]
     Active Substance: CRIZOTINIB
     Dosage: 200 MG, TWICE A DAY (8:00 AM AND 8:00 PM)
     Dates: start: 20190405
  4. GRILINCTUS /00558001/ [Concomitant]
     Dosage: 10 ML, ONCE A DAY
     Dates: start: 20190405
  5. GRILINCTUS /00558001/ [Concomitant]
     Dosage: 100 ML X 7DAYS
     Dates: start: 20170925
  6. GRILINCTUS /00558001/ [Concomitant]
     Dosage: 10 ML, UNK (14 DAYS)
     Dates: start: 20180411
  7. MONTAIR /01362601/ [Concomitant]
     Dosage: 1 DF, UNK (7 DAYS)
     Dates: start: 20180411
  8. MONTAIR /01362601/ [Concomitant]
     Dosage: 10 MG, ONCE A DAY (ONCE BEFORE BED, 30 DAYS)
     Dates: start: 20190405
  9. CRIZALK [Suspect]
     Active Substance: CRIZOTINIB
     Indication: LUNG NEOPLASM MALIGNANT
     Dosage: 1 DF, 2X/DAY (30 DAYS)
     Dates: start: 20170411
  10. MONTAIR /01362601/ [Concomitant]
     Dosage: 10 MG X 7 DAYS (ONCE BEFORE BED)
     Dates: start: 20170925

REACTIONS (13)
  - Pneumothorax [Unknown]
  - Visual impairment [Unknown]
  - Tumour associated fever [Unknown]
  - Liver function test abnormal [Unknown]
  - Bradycardia [Unknown]
  - Neoplasm progression [Unknown]
  - Condition aggravated [Unknown]
  - Diarrhoea [Unknown]
  - Pleural effusion [Unknown]
  - Pleural thickening [Unknown]
  - Cough [Unknown]
  - Bladder dilatation [Unknown]
  - Uterine leiomyoma [Unknown]

NARRATIVE: CASE EVENT DATE: 201712
